FAERS Safety Report 8896653 (Version 1)
Quarter: 2012Q4

REPORT INFORMATION
  Report Type: 
  Country: US (occurrence: US)
  Receive Date: 20121108
  Receipt Date: 20121108
  Transmission Date: 20130627
  Serious: No
  Sender: FDA-Public Use
  Company Number: US-AMGEN-USASP2012028057

PATIENT
  Age: 48 Year
  Sex: Male

DRUGS (1)
  1. ENBREL [Suspect]
     Indication: PSORIASIS
     Dosage: 50 mg, qwk
     Dates: start: 20120201, end: 20120422

REACTIONS (3)
  - Rash [Recovering/Resolving]
  - Drug ineffective [Not Recovered/Not Resolved]
  - Injection site rash [Recovering/Resolving]
